FAERS Safety Report 5162312-6 (Version None)
Quarter: 2006Q4

REPORT INFORMATION
  Report Type: 
  Country: None (occurrence: None)
  Receive Date: 20060919
  Receipt Date: 20060711
  Transmission Date: 20070319
  Serious: No
  Sender: FDA-Public Use
  Company Number: 2006US001560

PATIENT
  Age: 72 Year
  Sex: Female

DRUGS (4)
  1. VESICARE [Suspect]
     Indication: INCONTINENCE
     Dosage: 5 MG, UID/QD, ORAL; 10 MG, UID/QD, ORAL
     Route: 048
     Dates: start: 20060630, end: 20060706
  2. VESICARE [Suspect]
     Indication: INCONTINENCE
     Dosage: 5 MG, UID/QD, ORAL; 10 MG, UID/QD, ORAL
     Route: 048
     Dates: start: 20060101
  3. FOSAMAX [Concomitant]
  4. DIPYRIDAMOLE [Concomitant]

REACTIONS (5)
  - DIZZINESS [None]
  - DRUG INEFFECTIVE [None]
  - HEADACHE [None]
  - LETHARGY [None]
  - NAUSEA [None]
